FAERS Safety Report 23746838 (Version 2)
Quarter: 2024Q2

REPORT INFORMATION
  Report Type: Spontaneous
  Country: ZA (occurrence: ZA)
  Receive Date: 20240416
  Receipt Date: 20240503
  Transmission Date: 20240715
  Serious: Yes (Other)
  Sender: FDA-Public Use
  Company Number: ZA-AMGEN-ZAFSP2024073569

PATIENT

DRUGS (3)
  1. SENSIPAR [Suspect]
     Active Substance: CINACALCET HYDROCHLORIDE
     Indication: Hypercalcaemia
     Dosage: UNK
     Route: 065
  2. PROLIA [Suspect]
     Active Substance: DENOSUMAB
     Indication: Hypercalcaemia
     Dosage: 60 MILLIGRAM
     Route: 065
  3. PROLIA [Suspect]
     Active Substance: DENOSUMAB
     Indication: Off label use

REACTIONS (4)
  - Chronic kidney disease [Not Recovered/Not Resolved]
  - Parathyroidectomy [Unknown]
  - Blood calcium increased [Not Recovered/Not Resolved]
  - Off label use [Unknown]
